FAERS Safety Report 22291049 (Version 2)
Quarter: 2023Q2

REPORT INFORMATION
  Report Type: Spontaneous
  Country: GB (occurrence: GB)
  Receive Date: 20230506
  Receipt Date: 20230511
  Transmission Date: 20230722
  Serious: Yes (Death, Other)
  Sender: FDA-Public Use
  Company Number: GB-MHRA-MED-202304270945052630-QCYVH

PATIENT

DRUGS (1)
  1. PREDNISOLONE [Suspect]
     Active Substance: PREDNISOLONE
     Dosage: 5 MG, BID( DOSE REDUCTION FROM TWICE A DAY TO ONCE A DAY)

REACTIONS (2)
  - Adverse drug reaction [Fatal]
  - Blood glucose increased [Unknown]
